FAERS Safety Report 4738207-6 (Version None)
Quarter: 2005Q3

REPORT INFORMATION
  Report Type: 
  Country: None (occurrence: None)
  Receive Date: 20050802
  Receipt Date: 20050726
  Transmission Date: 20060218
  Serious: Yes (Hospitalization)
  Sender: FDA-Public Use
  Company Number: RHO/05/05/FIN

PATIENT
  Age: 35 Year
  Sex: Female
  Weight: 55 kg

DRUGS (6)
  1. RHOPHYLAC (ANTI-D IMMUNOGLOBULIN) [Suspect]
     Indication: IMMUNISATION
     Dosage: 1000 IU, ONCE, I.M.
     Route: 030
     Dates: start: 20050708, end: 20050708
  2. RHOPHYLAC (ANTI-D IMMUNOGLOBULIN) [Suspect]
     Indication: PROPHYLAXIS
     Dosage: 1000 IU, ONCE, I.M.
     Route: 030
     Dates: start: 20050708, end: 20050708
  3. LITALGIN (LITALGIN) [Concomitant]
  4. DICOLPHENAC (DICLOFENAC) [Concomitant]
  5. ACETAMINOPHEN [Concomitant]
  6. IBUPROFEN [Concomitant]

REACTIONS (1)
  - STEVENS-JOHNSON SYNDROME [None]
